FAERS Safety Report 12885407 (Version 1)
Quarter: 2016Q4

REPORT INFORMATION
  Report Type: Spontaneous
  Country: FR (occurrence: FR)
  Receive Date: 20161026
  Receipt Date: 20161026
  Transmission Date: 20170207
  Serious: Yes (Hospitalization)
  Sender: FDA-Public Use
  Company Number: FR-ASTRAZENECA-2016SF11670

PATIENT
  Age: 19578 Day
  Sex: Female

DRUGS (6)
  1. CELLCEPT [Concomitant]
     Active Substance: MYCOPHENOLATE MOFETIL\MYCOPHENOLATE MOFETIL HYDROCHLORIDE
  2. FUNGIZONE [Suspect]
     Active Substance: AMPHOTERICIN B
     Route: 065
  3. PROGRAF [Suspect]
     Active Substance: TACROLIMUS\TACROLIMUS ANHYDROUS
     Indication: PROPHYLAXIS AGAINST TRANSPLANT REJECTION
     Route: 065
  4. CORTICOIDS [Concomitant]
     Active Substance: UNSPECIFIED INGREDIENT
  5. INEXIUM [Suspect]
     Active Substance: ESOMEPRAZOLE
     Route: 048
  6. SIMULECT [Concomitant]
     Active Substance: BASILIXIMAB

REACTIONS (2)
  - Cholestatic liver injury [Recovered/Resolved]
  - Hepatocellular injury [Recovered/Resolved]

NARRATIVE: CASE EVENT DATE: 20150702
